FAERS Safety Report 5977594-8 (Version None)
Quarter: 2008Q4

REPORT INFORMATION
  Report Type: 
  Country: None (occurrence: None)
  Receive Date: 20081201
  Receipt Date: 20081201
  Transmission Date: 20090506
  Serious: Yes (Hospitalization)
  Sender: FDA-Public Use
  Company Number: None

PATIENT

DRUGS (1)
  1. NAPHCON-A OPHTHALMIC DROPS ALCON LABS [Suspect]
     Dosage: 1 DROP BOTH EYES NIGHTLY OPHTHALMIC
     Route: 047
     Dates: start: 20081004, end: 20081004

REACTIONS (8)
  - ANXIETY [None]
  - CHEST PAIN [None]
  - DYSPNOEA [None]
  - HEADACHE [None]
  - HYPOAESTHESIA [None]
  - MYDRIASIS [None]
  - NAUSEA [None]
  - PUPILS UNEQUAL [None]
